FAERS Safety Report 12455774 (Version 1)
Quarter: 2016Q2

REPORT INFORMATION
  Report Type: Spontaneous
  Country: US (occurrence: None)
  Receive Date: 20160609
  Receipt Date: 20160609
  Transmission Date: 20160815
  Serious: Yes (Life-Threatening, Hospitalization)
  Sender: FDA-Public Use
  Company Number: None

PATIENT
  Age: 56 Year
  Sex: Male
  Weight: 288.7 kg

DRUGS (2)
  1. ATORVASTATIN [Suspect]
     Active Substance: ATORVASTATIN
     Indication: CORONARY ARTERY DISEASE
     Dates: start: 20151220, end: 20160304
  2. ATORVASTATIN [Suspect]
     Active Substance: ATORVASTATIN
     Indication: TYPE 2 DIABETES MELLITUS
     Dates: start: 20151220, end: 20160304

REACTIONS (4)
  - Myalgia [None]
  - Rhabdomyolysis [None]
  - Blood urea increased [None]
  - Blood creatine increased [None]

NARRATIVE: CASE EVENT DATE: 20160304
